FAERS Safety Report 15010322 (Version 1)
Quarter: 2018Q2

REPORT INFORMATION
  Report Type: Spontaneous
  Country: US (occurrence: US)
  Receive Date: 20180614
  Receipt Date: 20180614
  Transmission Date: 20180711
  Serious: No
  Sender: FDA-Public Use
  Company Number: US-AUROBINDO-AUR-APU-2018-016187

PATIENT
  Sex: Female

DRUGS (1)
  1. CIPROFLOXACIN 250MG [Suspect]
     Active Substance: CIPROFLOXACIN
     Indication: PRODUCT USED FOR UNKNOWN INDICATION
     Dosage: UNK
     Route: 065

REACTIONS (9)
  - Dizziness [Unknown]
  - Back pain [Unknown]
  - Palpitations [Unknown]
  - Dyspnoea [Unknown]
  - Peripheral coldness [Unknown]
  - Tinnitus [Unknown]
  - Tremor [Unknown]
  - Hypoaesthesia [None]
  - Paraesthesia [Unknown]
